FAERS Safety Report 6242493-3 (Version None)
Quarter: 2009Q2

REPORT INFORMATION
  Report Type: 
  Country: None (occurrence: None)
  Receive Date: 20090624
  Receipt Date: 20090615
  Transmission Date: 20091009
  Serious: Yes (Life-Threatening, Hospitalization, Other)
  Sender: FDA-Public Use
  Company Number: US-JNJFOC-20070903682

PATIENT
  Sex: Male
  Weight: 70.31 kg

DRUGS (5)
  1. REMICADE [Suspect]
     Indication: CROHN'S DISEASE
     Route: 042
  2. IMURAN [Suspect]
     Indication: CROHN'S DISEASE
     Route: 048
  3. PREDNISONE [Suspect]
     Indication: CROHN'S DISEASE
     Route: 048
  4. PENTASA [Concomitant]
     Route: 048
  5. MULTI-VITAMINS [Concomitant]

REACTIONS (3)
  - HODGKIN'S DISEASE [None]
  - ILEOCOLECTOMY [None]
  - SMALL INTESTINAL OBSTRUCTION [None]
